FAERS Safety Report 4383396-9 (Version None)
Quarter: 2004Q2

REPORT INFORMATION
  Report Type: 
  Country: None (occurrence: None)
  Receive Date: 20040623
  Receipt Date: 20030318
  Transmission Date: 20050107
  Serious: Yes (Hospitalization, Disabling)
  Sender: FDA-Public Use
  Company Number: BR-ROCHE-334126

PATIENT
  Age: 36 Year
  Sex: Male
  Weight: 53.5 kg

DRUGS (17)
  1. ENFUVIRTIDE [Suspect]
     Indication: HIV INFECTION
     Route: 058
     Dates: start: 20020731
  2. STREPTOMYCIN [Suspect]
     Indication: DISSEMINATED TUBERCULOSIS
     Route: 065
     Dates: start: 20020422, end: 20020822
  3. ISONIAZID [Concomitant]
     Dates: start: 20020422, end: 20030220
  4. ETHAMBUTOL HCL [Concomitant]
     Dates: start: 20020422
  5. PYRAZINAMIDE [Concomitant]
     Dates: start: 20020422, end: 20020615
  6. CLARITHROMYCIN [Concomitant]
     Dates: start: 20021007
  7. AMPHOTERICIN B [Concomitant]
     Dates: start: 20020826, end: 20021021
  8. STAVUDINE [Concomitant]
     Dates: start: 20020315
  9. DIDANOSINE [Concomitant]
     Dates: start: 20020315
  10. EFAVIRENZ [Concomitant]
     Dates: start: 20020808
  11. SULFADIAZINE [Concomitant]
     Dates: start: 19980515
  12. PYRIMETHAMINE TAB [Concomitant]
     Dates: start: 19980515
  13. RIFAMPIN [Concomitant]
     Dates: start: 20020808, end: 20030220
  14. LOPINAVIR/RITONAVIR [Concomitant]
     Dosage: TOTAL DAILY DOSE: 500 (NO UNITS PROVIDED).
     Dates: start: 20030404
  15. AZITHROMYCIN [Concomitant]
     Dates: start: 20020407
  16. FOLINIC ACID [Concomitant]
     Dates: start: 19980515
  17. PHENYTOIN [Concomitant]
     Dates: start: 20030706

REACTIONS (2)
  - CONVULSION [None]
  - DEAFNESS [None]
